FAERS Safety Report 7202263-6 (Version None)
Quarter: 2010Q4

REPORT INFORMATION
  Report Type: 
  Country: None (occurrence: None)
  Receive Date: 20101229
  Receipt Date: 20101217
  Transmission Date: 20110411
  Serious: Yes (Other)
  Sender: FDA-Public Use
  Company Number: PHHY2010AT86315

PATIENT
  Age: 76 Year
  Sex: Male
  Weight: 95 kg

DRUGS (4)
  1. TASIGNA [Suspect]
     Indication: CHRONIC MYELOID LEUKAEMIA
     Dosage: 300 MG, DAILY
     Route: 048
     Dates: start: 20080612
  2. MARCOUMAR [Concomitant]
  3. SIMVASTATIN [Concomitant]
     Dosage: 40 MG, DAILY
     Route: 048
  4. GLIMEPIRIDE [Concomitant]
     Dosage: 09 MG, DAILY
     Route: 048

REACTIONS (2)
  - DIABETES MELLITUS [None]
  - PERIPHERAL ARTERIAL OCCLUSIVE DISEASE [None]
